FAERS Safety Report 7485298-8 (Version None)
Quarter: 2011Q2

REPORT INFORMATION
  Report Type: 
  Country: None (occurrence: None)
  Receive Date: 20110517
  Receipt Date: 20101216
  Transmission Date: 20111010
  Serious: Yes (Life-Threatening, Disabling)
  Sender: FDA-Public Use
  Company Number: US-BAYER-2010-007462

PATIENT
  Age: 43 Year
  Sex: Female
  Weight: 104.31 kg

DRUGS (1)
  1. AVELOX [Suspect]
     Dosage: 400 MG, UNK
     Route: 048
     Dates: start: 20101215, end: 20101215

REACTIONS (2)
  - HEART RATE INCREASED [None]
  - ANAPHYLACTIC SHOCK [None]
